FAERS Safety Report 5453550-3 (Version None)
Quarter: 2007Q3

REPORT INFORMATION
  Report Type: 
  Country: None (occurrence: None)
  Receive Date: 20070913
  Receipt Date: 20070907
  Transmission Date: 20080115
  Serious: Yes (Death)
  Sender: FDA-Public Use
  Company Number: 2007-03008

PATIENT
  Age: 65 Year
  Sex: Female
  Weight: 55 kg

DRUGS (12)
  1. VELCADE [Suspect]
     Indication: MULTIPLE MYELOMA
     Dosage: 1.50 MG, INTRAVENOUS
     Route: 042
     Dates: start: 20070622, end: 20070803
  2. DEXAMETHASONE TAB [Suspect]
     Indication: MULTIPLE MYELOMA
     Dosage: 20.00 MG, INTRAVENOUS
     Route: 042
     Dates: start: 20070622, end: 20070804
  3. FAMOTIDINE [Concomitant]
  4. BAKTAR                (SULFAMETHOXAZOLE, TRIMETHOPRIM) [Concomitant]
  5. MUCOSTA              (REBAMIPIDE) [Concomitant]
  6. ITRACONAZOLE [Concomitant]
  7. ALOSENN (TARAXACUM OFFICINALE, ACHILLEA, SENNA LEAF, RUBIA ROOT TINCTU [Concomitant]
  8. CIPROFLAXACIN [Concomitant]
  9. BROACT        (CEFPIROME SULFATE) [Concomitant]
  10. GAMMAGARD [Concomitant]
  11. NEU-UP             (NARTOGRASTIM) [Concomitant]
  12. RISPERDAL [Concomitant]

REACTIONS (8)
  - ANAEMIA [None]
  - BRAIN NEOPLASM [None]
  - DISEASE PROGRESSION [None]
  - DRUG INEFFECTIVE [None]
  - OEDEMA [None]
  - PLATELET COUNT DECREASED [None]
  - PYREXIA [None]
  - WHITE BLOOD CELL COUNT DECREASED [None]
